FAERS Safety Report 15151994 (Version 1)
Quarter: 2018Q3

REPORT INFORMATION
  Report Type: Report from Study
  Country: US (occurrence: US)
  Receive Date: 20180717
  Receipt Date: 20180717
  Transmission Date: 20181010
  Serious: No
  Sender: FDA-Public Use
  Company Number: PHEH2018US028260

PATIENT
  Sex: Female

DRUGS (1)
  1. AFINITOR [Suspect]
     Active Substance: EVEROLIMUS
     Indication: PRODUCT USED FOR UNKNOWN INDICATION
     Dosage: 5 MG, UNK (TAKE 1 BY MOUTH DAILY FOR 2 WEEKS, THEN INCREASE TO 2 TABLETS DAILY)
     Route: 048

REACTIONS (1)
  - Asthenia [Not Recovered/Not Resolved]
